FAERS Safety Report 13824900 (Version 1)
Quarter: 2017Q3

REPORT INFORMATION
  Report Type: Spontaneous
  Country: US (occurrence: US)
  Receive Date: 20170802
  Receipt Date: 20170802
  Transmission Date: 20171127
  Serious: Yes (Hospitalization, Disabling, Other)
  Sender: FDA-Public Use
  Company Number: None

PATIENT
  Age: 60 Year
  Sex: Female
  Weight: 85.35 kg

DRUGS (9)
  1. PLAVIX [Concomitant]
     Active Substance: CLOPIDOGREL BISULFATE
  2. VITAMIN C [Concomitant]
     Active Substance: ASCORBIC ACID
  3. JANUVIA [Concomitant]
     Active Substance: SITAGLIPTIN PHOSPHATE
  4. ASPIRIN. [Concomitant]
     Active Substance: ASPIRIN
  5. LIPITOR [Concomitant]
     Active Substance: ATORVASTATIN CALCIUM
  6. EYLEA [Suspect]
     Active Substance: AFLIBERCEPT
     Indication: MACULAR OEDEMA
     Route: 031
     Dates: start: 20150818, end: 20170424
  7. PRANDIN [Concomitant]
     Active Substance: REPAGLINIDE
  8. MULTI VITAMINS [Concomitant]
     Active Substance: VITAMINS
  9. OCUVITE [Concomitant]
     Active Substance: VITAMINS

REACTIONS (3)
  - Transient ischaemic attack [None]
  - Retinal artery occlusion [None]
  - Cerebrovascular accident [None]

NARRATIVE: CASE EVENT DATE: 20170322
